FAERS Safety Report 5019359-X (Version None)
Quarter: 2006Q2

REPORT INFORMATION
  Report Type: 
  Country: None (occurrence: None)
  Receive Date: 20060531
  Receipt Date: 20060525
  Transmission Date: 20061013
  Serious: Yes (Hospitalization)
  Sender: FDA-Public Use
  Company Number: 200610683BYL

PATIENT
  Sex: Female

DRUGS (1)
  1. CIPROFLOXACIN [Suspect]
     Dosage: 300 MG, ONCE, INTRAVENOUS
     Route: 042
     Dates: start: 20060525

REACTIONS (1)
  - HYPOGLYCAEMIA [None]
